FAERS Safety Report 15679851 (Version 3)
Quarter: 2018Q4

REPORT INFORMATION
  Report Type: Report from Study
  Country: None (occurrence: BE)
  Receive Date: 20181203
  Receipt Date: 20181213
  Transmission Date: 20190205
  Serious: Yes (Death, Hospitalization)
  Sender: FDA-Public Use
  Company Number: BE-ABBVIE-17K-013-2177026-00

PATIENT
  Age: 71 Year
  Sex: Male

DRUGS (5)
  1. DUODOPA [Suspect]
     Active Substance: CARBIDOPA\LEVODOPA
     Dosage: DOSES CONTINUOUSLY MONITORED AND ADAPTED
     Route: 050
     Dates: start: 20140404, end: 20171117
  2. DUODOPA [Suspect]
     Active Substance: CARBIDOPA\LEVODOPA
     Indication: PARKINSON^S DISEASE
     Dosage: MD=9ML??CD=3.7ML/HR DURING 16HRS ??ED=2.5ML
     Route: 050
     Dates: start: 20140331, end: 20140404
  3. DUODOPA [Suspect]
     Active Substance: CARBIDOPA\LEVODOPA
     Dosage: MD=8ML??CD=3.3ML/HR DURING 16HRS ??ED=2.5ML
     Route: 050
     Dates: start: 20171117, end: 2017
  4. DUODOPA [Suspect]
     Active Substance: CARBIDOPA\LEVODOPA
     Route: 050
     Dates: start: 2017, end: 20180523
  5. DUODOPA [Suspect]
     Active Substance: CARBIDOPA\LEVODOPA
     Dosage: MD= 8ML?CD= 3.4ML/HR DURING 16HRS?ED= 2.5ML
     Route: 050
     Dates: start: 20180523

REACTIONS (10)
  - Stoma site infection [Recovered/Resolved]
  - Device connection issue [Recovered/Resolved]
  - Stoma site pain [Unknown]
  - Death [Fatal]
  - Gastric volvulus [Unknown]
  - Device dislocation [Recovering/Resolving]
  - Stoma site infection [Not Recovered/Not Resolved]
  - Incorrect route of product administration [Recovered/Resolved]
  - Stoma site inflammation [Unknown]
  - Stoma site reaction [Recovering/Resolving]

NARRATIVE: CASE EVENT DATE: 20171208
